FAERS Safety Report 12650945 (Version 1)
Quarter: 2016Q3

REPORT INFORMATION
  Report Type: Spontaneous
  Country: US (occurrence: US)
  Receive Date: 20160815
  Receipt Date: 20160815
  Transmission Date: 20161109
  Serious: No
  Sender: FDA-Public Use
  Company Number: US-JAZZ-2016-US-005033

PATIENT
  Sex: Male

DRUGS (34)
  1. LEVOTHYROXINE. [Concomitant]
     Active Substance: LEVOTHYROXINE
  2. HCTZ [Concomitant]
     Active Substance: HYDROCHLOROTHIAZIDE
  3. IMDUR [Concomitant]
     Active Substance: ISOSORBIDE MONONITRATE
  4. DONEPEZIL HCL [Concomitant]
     Active Substance: DONEPEZIL HYDROCHLORIDE
  5. CYMBALTA [Concomitant]
     Active Substance: DULOXETINE HYDROCHLORIDE
  6. XYREM [Suspect]
     Active Substance: SODIUM OXYBATE
     Dosage: 4.5 G, BID
     Route: 048
     Dates: start: 201305
  7. HYDROCODONE/ACETAMINOPHEN [Concomitant]
     Active Substance: ACETAMINOPHEN\HYDROCODONE
  8. HYDROCORTISONE. [Concomitant]
     Active Substance: HYDROCORTISONE
  9. POTASSIUM [Concomitant]
     Active Substance: POTASSIUM
  10. SEROQUEL [Concomitant]
     Active Substance: QUETIAPINE FUMARATE
  11. CLONAZEPAM. [Concomitant]
     Active Substance: CLONAZEPAM
  12. DIPHENOXYLATE/ATROPINE [Concomitant]
     Active Substance: ATROPINE\DIPHENOXYLATE
  13. NITROSTAT [Concomitant]
     Active Substance: NITROGLYCERIN
  14. DOXEPIN [Concomitant]
     Active Substance: DOXEPIN
  15. AMBIEN [Concomitant]
     Active Substance: ZOLPIDEM TARTRATE
  16. NIACIN. [Concomitant]
     Active Substance: NIACIN
  17. LYRICA [Concomitant]
     Active Substance: PREGABALIN
  18. XYREM [Suspect]
     Active Substance: SODIUM OXYBATE
     Indication: FIBROMYALGIA
     Dosage: 3 G, BID
     Route: 048
     Dates: start: 200808, end: 200808
  19. CYANOCOBALAMIN. [Concomitant]
     Active Substance: CYANOCOBALAMIN
  20. CRESTOR [Concomitant]
     Active Substance: ROSUVASTATIN CALCIUM
  21. PANTOPRAZOLE SODIUM. [Concomitant]
     Active Substance: PANTOPRAZOLE SODIUM
  22. MIRTAZAPINE. [Concomitant]
     Active Substance: MIRTAZAPINE
  23. IMODIUM [Concomitant]
     Active Substance: LOPERAMIDE HYDROCHLORIDE
  24. CARISOPRODOL. [Concomitant]
     Active Substance: CARISOPRODOL
  25. TRIHEXYPHENIDYL [Concomitant]
     Active Substance: TRIHEXYPHENIDYL
  26. VITAMIN D3 [Concomitant]
     Active Substance: CHOLECALCIFEROL
  27. TRAZODONE [Concomitant]
     Active Substance: TRAZODONE HYDROCHLORIDE
  28. XYREM [Suspect]
     Active Substance: SODIUM OXYBATE
     Dosage: DOSE ADJUSTMENTS
     Route: 048
  29. OMEGA 3 FISH OIL [Concomitant]
     Active Substance: FISH OIL\OMEGA-3 FATTY ACIDS
  30. SINEMET [Concomitant]
     Active Substance: CARBIDOPA\LEVODOPA
  31. CARVEDILOL. [Concomitant]
     Active Substance: CARVEDILOL
  32. CLOPIDOGREL [Concomitant]
     Active Substance: CLOPIDOGREL BISULFATE
  33. NAMENDA [Concomitant]
     Active Substance: MEMANTINE HYDROCHLORIDE
  34. LISINOPRIL. [Concomitant]
     Active Substance: LISINOPRIL

REACTIONS (1)
  - Poor quality sleep [Not Recovered/Not Resolved]
